FAERS Safety Report 6845873-8 (Version None)
Quarter: 2010Q3

REPORT INFORMATION
  Report Type: 
  Country: None (occurrence: None)
  Receive Date: 20100715
  Receipt Date: 20080116
  Transmission Date: 20110219
  Serious: No
  Sender: FDA-Public Use
  Company Number: US-PFIZER INC-2007072239

PATIENT
  Sex: Male
  Weight: 76.4 kg

DRUGS (3)
  1. CHANTIX [Suspect]
     Indication: SMOKING CESSATION THERAPY
     Route: 048
     Dates: start: 20070802
  2. NAPROXEN [Concomitant]
     Indication: EPICONDYLITIS
  3. CENTRUM [Concomitant]

REACTIONS (1)
  - APHTHOUS STOMATITIS [None]
